FAERS Safety Report 7052175-6 (Version None)
Quarter: 2010Q4

REPORT INFORMATION
  Report Type: 
  Country: None (occurrence: None)
  Receive Date: 20101018
  Receipt Date: 20101018
  Transmission Date: 20110411
  Serious: No
  Sender: FDA-Public Use
  Company Number: None

PATIENT
  Age: 75 Year
  Sex: Female

DRUGS (2)
  1. AVASTIN [Suspect]
     Dosage: NOT PROVIDED
  2. FOLFOX NOT PROVIDED [Suspect]
     Dosage: NOT PROVIDED

REACTIONS (1)
  - VISION BLURRED [None]
